FAERS Safety Report 11364712 (Version 1)
Quarter: 2015Q3

REPORT INFORMATION
  Report Type: Spontaneous
  Country: US (occurrence: US)
  Receive Date: 20150811
  Receipt Date: 20150811
  Transmission Date: 20151125
  Serious: Yes (Other)
  Sender: FDA-Public Use
  Company Number: US-PFIZER INC-2015261847

PATIENT
  Age: 57 Year
  Sex: Male

DRUGS (3)
  1. GABAPENTIN. [Suspect]
     Active Substance: GABAPENTIN
     Indication: PAIN
     Dosage: DOING 300MG - 6 THEN 4 THEN 4 THEN 6 IN A DAY.
  2. GABAPENTIN. [Suspect]
     Active Substance: GABAPENTIN
     Indication: BURNING SENSATION
  3. GABAPENTIN. [Suspect]
     Active Substance: GABAPENTIN
     Indication: NEURALGIA
     Dosage: 6000 MG, DAILY

REACTIONS (20)
  - Suicidal ideation [Unknown]
  - Gynaecomastia [Unknown]
  - Rash [Unknown]
  - Diaphragmatic spasm [Unknown]
  - Disturbance in attention [Unknown]
  - Breast swelling [Unknown]
  - Reflexes abnormal [Unknown]
  - Dry mouth [Unknown]
  - Eating disorder [Unknown]
  - Feeling abnormal [Unknown]
  - Chest pain [Unknown]
  - Anger [Unknown]
  - Dry skin [Unknown]
  - Eye movement disorder [Unknown]
  - Visual impairment [Unknown]
  - Headache [Unknown]
  - Skin lesion [Unknown]
  - Muscle spasms [Unknown]
  - Confusional state [Unknown]
  - Abdominal pain upper [Unknown]
